FAERS Safety Report 12901803 (Version 3)
Quarter: 2019Q3

REPORT INFORMATION
  Report Type: Spontaneous
  Country: CA (occurrence: CA)
  Receive Date: 20161102
  Receipt Date: 20190723
  Transmission Date: 20191004
  Serious: Yes (Other)
  Sender: FDA-Public Use
  Company Number: CA-ROCHE-1849027

PATIENT
  Age: 38 Year
  Sex: Male

DRUGS (5)
  1. XOLAIR [Suspect]
     Active Substance: OMALIZUMAB
     Route: 058
     Dates: start: 20160825
  2. XOLAIR [Suspect]
     Active Substance: OMALIZUMAB
     Indication: NASAL POLYPS
     Route: 058
     Dates: start: 20160310
  3. CORTISONE [Suspect]
     Active Substance: CORTISONE
     Indication: PRODUCT USED FOR UNKNOWN INDICATION
     Dosage: UNK
     Route: 065
  4. PULMICORT TURBUHALER [Concomitant]
     Active Substance: BUDESONIDE
     Indication: PRODUCT USED FOR UNKNOWN INDICATION
     Route: 065
  5. XOLAIR [Suspect]
     Active Substance: OMALIZUMAB
     Route: 058
     Dates: start: 20160922, end: 20160922

REACTIONS (12)
  - Asthenia [Unknown]
  - Nasal discharge discolouration [Unknown]
  - Product use in unapproved indication [Unknown]
  - Allergy to animal [Unknown]
  - Hypersensitivity [Not Recovered/Not Resolved]
  - Weight increased [Unknown]
  - Nasal injury [Unknown]
  - Nasal polyps [Unknown]
  - Fatigue [Unknown]
  - Meningitis [Unknown]
  - Drug ineffective [Unknown]
  - Sinusitis [Recovered/Resolved]

NARRATIVE: CASE EVENT DATE: 20161026
